FAERS Safety Report 6173361-3 (Version None)
Quarter: 2009Q2

REPORT INFORMATION
  Report Type: 
  Country: None (occurrence: None)
  Receive Date: 20090430
  Receipt Date: 20090423
  Transmission Date: 20091009
  Serious: Yes (Other)
  Sender: FDA-Public Use
  Company Number: US-JNJCH-2009011326

PATIENT
  Age: 64 Year
  Sex: Female
  Weight: 77.1 kg

DRUGS (16)
  1. LISTERINE WHITENING PRE-BRUSH RINSE [Suspect]
     Indication: DENTAL CARE
     Dosage: TEXT:1/2 CAPFUL ONCE A DAY
     Route: 050
  2. ALENDRONATE SODIUM [Suspect]
     Indication: DRUG USE FOR UNKNOWN INDICATION
     Dosage: TEXT:UNSPECIFIED
     Route: 048
  3. GLATIRAMER ACETATE [Concomitant]
     Indication: MULTIPLE SCLEROSIS
     Dosage: TEXT:1 SHOT PER DAY
     Route: 065
  4. LANSOPRAZOLE [Concomitant]
     Indication: GASTROOESOPHAGEAL REFLUX DISEASE
     Dosage: TEXT:30MG 1 X DAY
     Route: 048
  5. AMITRIPTYLINE [Concomitant]
     Indication: SLEEP DISORDER
     Dosage: TEXT:150MG 1 X DAY
     Route: 048
  6. SERTRALINE HYDROCHLORIDE [Concomitant]
     Indication: DEPRESSION
     Dosage: TEXT:150MG 1 X DAY
     Route: 048
  7. BACLOFEN [Concomitant]
     Indication: MUSCLE SPASMS
     Dosage: TEXT:10MG 1 X DAY
     Route: 048
  8. LEVOSALBUTAMOL [Concomitant]
     Indication: DRUG USE FOR UNKNOWN INDICATION
     Dosage: TEXT:1.25MG WHEN NEEDED
     Route: 055
  9. PROCATEROL HYDROCHLORIDE [Concomitant]
     Indication: DRUG USE FOR UNKNOWN INDICATION
     Dosage: TEXT:UNSPECIFIED WHEN NEEDED
     Route: 055
  10. TRIAMCINOLONE [Concomitant]
     Indication: DRUG USE FOR UNKNOWN INDICATION
     Dosage: TEXT:UNSPECIFIED
     Route: 061
  11. TERBINAFINE HYDROCHLORIDE [Concomitant]
     Indication: DRUG USE FOR UNKNOWN INDICATION
     Dosage: TEXT:25% UNSPECIFIED
     Route: 061
  12. DESOXIMETASONE [Concomitant]
     Indication: PRURITUS
     Dosage: TEXT:UNSPECIFIED
     Route: 061
  13. KETOCONAZOLE [Concomitant]
     Indication: ANTIFUNGAL TREATMENT
     Dosage: TEXT:UNSPECIFIED
     Route: 061
  14. ERYTHROMYCIN [Concomitant]
     Indication: EYE DISORDER
     Dosage: TEXT:UNSPECIFIED
     Route: 047
  15. MONTELUKAST SODIUM [Concomitant]
     Indication: DRUG USE FOR UNKNOWN INDICATION
     Dosage: TEXT:UNSPECIFIED
     Route: 048
  16. THIAMAZOLE [Concomitant]
     Indication: THYROID DISORDER
     Dosage: TEXT:UNSPECIFIED
     Route: 048

REACTIONS (3)
  - APPLICATION SITE IRRITATION [None]
  - GINGIVAL DISORDER [None]
  - JAW DISORDER [None]
